FAERS Safety Report 21951544 (Version 1)
Quarter: 2023Q1

REPORT INFORMATION
  Report Type: Spontaneous
  Country: None (occurrence: GB)
  Receive Date: 20230203
  Receipt Date: 20230203
  Transmission Date: 20230418
  Serious: Yes (Life-Threatening)
  Sender: FDA-Public Use
  Company Number: GB-Ascend Therapeutics US, LLC-2137481

PATIENT
  Age: 82 Year
  Sex: Female

DRUGS (17)
  1. ESTROGEL [Suspect]
     Active Substance: ESTRADIOL
     Indication: Product used for unknown indication
     Route: 065
  2. ESTROGEL [Suspect]
     Active Substance: ESTRADIOL
  3. ESTRADIOL [Suspect]
     Active Substance: ESTRADIOL
     Route: 065
  4. AMOXICILLIN [Concomitant]
     Active Substance: AMOXICILLIN
     Route: 065
     Dates: start: 20220701
  5. ASPIRIN [Concomitant]
     Active Substance: ASPIRIN
     Route: 065
  6. BISOPROLOL [Concomitant]
     Active Substance: BISOPROLOL
     Dates: start: 20220701
  7. DOXAZOSIN [Concomitant]
     Active Substance: DOXAZOSIN MESYLATE
     Route: 065
     Dates: start: 20220701
  8. EDOXABAN(EDOXABAN) [Concomitant]
     Route: 065
     Dates: start: 20220701
  9. OMEPRAZOLE [Concomitant]
     Active Substance: OMEPRAZOLE
     Route: 065
  10. PARACETAMOL AND DIHYDROCODEINE(PARACETAMOL, DIHYDROCODEINE BITARTRATE) [Concomitant]
     Route: 065
  11. PARACETAMOL(PARACETAMOL)?Daily Dose :1)One Or Two To Be Taken Up To Fo [Concomitant]
     Route: 065
     Dates: start: 20220701
  12. PHOLCODINE(PHOLCODINE)?Daily Dose : 1) 10mg/5ml One 5ml Spoonful nocte [Concomitant]
     Route: 065
     Dates: start: 20220701
  13. ROSUVASTATIN [Concomitant]
     Active Substance: ROSUVASTATIN
     Dates: start: 20220701
  14. TRAMADOL [Concomitant]
     Active Substance: TRAMADOL
     Route: 065
  15. VAGIFEM [Concomitant]
     Active Substance: ESTRADIOL
     Route: 065
  16. GAVISCON ADVANCE(SODIUM ALGINATE)?Daily Dose : 1)One Or Two To Be Chew [Concomitant]
     Route: 065
  17. CO-AMILOZIDE(HYDROCHLOROTHIAZIDE, AMILORIDE HYDROCHLORIDE) [Concomitant]
     Route: 065

REACTIONS (2)
  - Ischaemic stroke [Unknown]
  - Vertebrobasilar insufficiency [Unknown]
